FAERS Safety Report 8007574-2 (Version None)
Quarter: 2011Q4

REPORT INFORMATION
  Report Type: 
  Country: None (occurrence: None)
  Receive Date: 20111222
  Receipt Date: 20111222
  Transmission Date: 20120403
  Serious: Yes (Other)
  Sender: FDA-Public Use
  Company Number: None

PATIENT
  Sex: Female

DRUGS (2)
  1. CLARITHROMYCIN [Suspect]
     Indication: SINUSITIS
     Dosage: 500 MG BID PO
     Route: 048
     Dates: start: 20111120, end: 20111122
  2. CLARITHROMYCIN [Suspect]
     Indication: GASTROINTESTINAL INFECTION
     Dosage: 500 MG BID PO
     Route: 048
     Dates: start: 20111120, end: 20111122

REACTIONS (6)
  - MALAISE [None]
  - DIZZINESS [None]
  - INSOMNIA [None]
  - WEIGHT DECREASED [None]
  - TREMOR [None]
  - MOVEMENT DISORDER [None]
